FAERS Safety Report 6129534-9 (Version None)
Quarter: 2009Q1

REPORT INFORMATION
  Report Type: 
  Country: None (occurrence: None)
  Receive Date: 20090324
  Receipt Date: 20090317
  Transmission Date: 20090719
  Serious: Yes (Hospitalization)
  Sender: FDA-Public Use
  Company Number: PHHY2008MX01798

PATIENT
  Age: 82 Year
  Sex: Female

DRUGS (1)
  1. DIOVAN HCT [Suspect]
     Dosage: 80 MG OF VALS/12.5 MG OF HCT/DAY
     Route: 048
     Dates: start: 20070101, end: 20080101

REACTIONS (3)
  - CHOLECYSTECTOMY [None]
  - HEPATIC PAIN [None]
  - HYPERTENSION [None]
